FAERS Safety Report 7166100-0 (Version None)
Quarter: 2010Q4

REPORT INFORMATION
  Report Type: 
  Country: None (occurrence: None)
  Receive Date: 20101216
  Receipt Date: 20101202
  Transmission Date: 20110411
  Serious: No
  Sender: FDA-Public Use
  Company Number: US-BIOGENIDEC-2010BI043530

PATIENT
  Age: 34 Year
  Sex: Female

DRUGS (3)
  1. AVONEX [Suspect]
     Indication: MULTIPLE SCLEROSIS
     Route: 030
     Dates: start: 19980501, end: 20020501
  2. AVONEX [Suspect]
     Route: 030
     Dates: start: 20080714
  3. AVONEX [Suspect]
     Route: 030
     Dates: start: 20100417

REACTIONS (3)
  - ABASIA [None]
  - HYPOAESTHESIA [None]
  - WEIGHT DECREASED [None]
